APPROVED DRUG PRODUCT: IBUPROFEN
Active Ingredient: IBUPROFEN
Strength: 40MG/ML
Dosage Form/Route: SUSPENSION/DROPS;ORAL
Application: A217261 | Product #001
Applicant: SUN PHARMA CANADA INC
Approved: Aug 8, 2023 | RLD: No | RS: No | Type: OTC